FAERS Safety Report 22300505 (Version 1)
Quarter: 2023Q2

REPORT INFORMATION
  Report Type: Spontaneous
  Country: US (occurrence: US)
  Receive Date: 20230509
  Receipt Date: 20230509
  Transmission Date: 20230722
  Serious: Yes (Other)
  Sender: FDA-Public Use
  Company Number: US-JNJFOC-20230507193

PATIENT
  Age: 51 Year
  Sex: Female

DRUGS (2)
  1. TOPIRAMATE [Suspect]
     Active Substance: TOPIRAMATE
     Indication: Migraine
     Route: 048
  2. TOPIRAMATE [Suspect]
     Active Substance: TOPIRAMATE
     Indication: Depression

REACTIONS (2)
  - Ciliary body disorder [Unknown]
  - Angle closure glaucoma [Unknown]
